FAERS Safety Report 9280334 (Version 1)
Quarter: 2013Q2

REPORT INFORMATION
  Report Type: Spontaneous
  Country: US (occurrence: US)
  Receive Date: 20130509
  Receipt Date: 20130509
  Transmission Date: 20140414
  Serious: Yes (Hospitalization)
  Sender: FDA-Public Use
  Company Number: US-ELI_LILLY_AND_COMPANY-US201305000244

PATIENT
  Age: 79 Year
  Sex: Female

DRUGS (10)
  1. FORTEO [Suspect]
     Indication: OSTEOPOROSIS
     Dosage: UNK, QD
     Dates: start: 20110502
  2. SERTRALINE                         /01011402/ [Concomitant]
     Dosage: UNK, QD
  3. SIMVASTIN [Concomitant]
     Dosage: UNK, QD
  4. METOPROLOL [Concomitant]
     Dosage: UNK, QD
  5. METHOTREXATE                       /00113801/ [Concomitant]
     Indication: ARTHRITIS
     Dosage: UNK, WEEKLY (1/W)
  6. FOLIC ACID [Concomitant]
     Dosage: UNK, QD
  7. ASPIRIN [Concomitant]
     Indication: CARDIAC DISORDER
     Dosage: 81 MG, QD
  8. LEVOTHYROXINE [Concomitant]
     Indication: THYROID DISORDER
     Dosage: UNK, QD
  9. TYLENOL                                 /SCH/ [Concomitant]
     Dosage: 325 MG, PRN
  10. LATANOPROST [Concomitant]
     Dosage: UNK, QD
     Route: 047

REACTIONS (4)
  - Fall [Unknown]
  - Balance disorder [Unknown]
  - Haemoglobin decreased [Unknown]
  - Incorrect drug administration duration [Unknown]
